FAERS Safety Report 8294936-1 (Version None)
Quarter: 2012Q2

REPORT INFORMATION
  Report Type: 
  Country: None (occurrence: None)
  Receive Date: 20120418
  Receipt Date: 20120409
  Transmission Date: 20120825
  Serious: Yes (Hospitalization)
  Sender: FDA-Public Use
  Company Number: CA-JNJFOC-20111102138

PATIENT
  Sex: Female
  Weight: 49.5 kg

DRUGS (13)
  1. TYLENOL (CAPLET) [Concomitant]
     Route: 065
  2. METHOTREXATE [Concomitant]
     Route: 065
  3. ALL OTHER THERAPEUTIC DRUGS [Concomitant]
     Route: 065
  4. REMICADE [Suspect]
     Route: 042
     Dates: end: 20110301
  5. SYNTHROID [Concomitant]
     Route: 065
  6. MOTILIUM [Concomitant]
     Route: 065
  7. REMICADE [Suspect]
     Indication: PRODUCT USED FOR UNKNOWN INDICATION
     Route: 042
     Dates: end: 20111006
  8. NAPROSYN [Concomitant]
     Route: 065
  9. PANTOPRAZOLE SODIUM [Concomitant]
     Route: 065
  10. CALCIUM CARBONATE [Concomitant]
     Route: 065
  11. PLAQUENIL [Concomitant]
     Route: 065
  12. FOSAMAX [Concomitant]
     Route: 065
  13. LYRICA [Concomitant]
     Route: 065

REACTIONS (2)
  - PERICARDITIS [None]
  - LUPUS-LIKE SYNDROME [None]
